FAERS Safety Report 5365452-1 (Version None)
Quarter: 2007Q2

REPORT INFORMATION
  Report Type: 
  Country: None (occurrence: None)
  Receive Date: 20070621
  Receipt Date: 20070612
  Transmission Date: 20071010
  Serious: Yes (Other)
  Sender: FDA-Public Use
  Company Number: AU-MERCK-0706AUS00036

PATIENT
  Age: 70 Year
  Sex: Male

DRUGS (9)
  1. SIMVASTATIN [Suspect]
     Indication: BLOOD CHOLESTEROL INCREASED
     Route: 048
     Dates: start: 19940101, end: 20060901
  2. SIMVASTATIN [Suspect]
     Route: 048
     Dates: start: 20060101, end: 20070609
  3. DILTIAZEM HYDROCHLORIDE [Concomitant]
     Indication: BLOOD PRESSURE ABNORMAL
     Route: 065
  4. RAMIPRIL [Concomitant]
     Indication: BLOOD PRESSURE ABNORMAL
     Route: 065
  5. CLOPIDOGREL BISULFATE [Concomitant]
     Indication: CARDIAC DISORDER
     Route: 065
  6. CLOPIDOGREL BISULFATE [Concomitant]
     Indication: ANTICOAGULANT THERAPY
     Route: 065
  7. ASPIRIN [Concomitant]
     Indication: CARDIAC DISORDER
     Route: 065
  8. ASPIRIN [Concomitant]
     Indication: ANTICOAGULANT THERAPY
     Route: 065
  9. PSYLLIUM HUSK [Concomitant]
     Indication: BLOOD CHOLESTEROL INCREASED
     Route: 065

REACTIONS (3)
  - ARTERIAL OCCLUSIVE DISEASE [None]
  - CIRCULATORY COLLAPSE [None]
  - HEART RATE IRREGULAR [None]
